FAERS Safety Report 25142912 (Version 1)
Quarter: 2025Q2

REPORT INFORMATION
  Report Type: Report from Study
  Country: US (occurrence: US)
  Receive Date: 20250401
  Receipt Date: 20250401
  Transmission Date: 20250717
  Serious: Yes (Hospitalization)
  Sender: TAKEDA
  Company Number: US-TAKEDA-US201816233

PATIENT
  Age: 32 Year
  Sex: Male

DRUGS (2)
  1. IDURSULFASE [Suspect]
     Active Substance: IDURSULFASE
     Indication: Mucopolysaccharidosis II
     Dosage: 30 MILLIGRAM, 1/WEEK
  2. IDURSULFASE [Suspect]
     Active Substance: IDURSULFASE

REACTIONS (3)
  - Procedural pain [Unknown]
  - Fall [Unknown]
  - Product dose omission issue [Unknown]

NARRATIVE: CASE EVENT DATE: 20250325
